FAERS Safety Report 6640402-6 (Version None)
Quarter: 2010Q1

REPORT INFORMATION
  Report Type: 
  Country: None (occurrence: None)
  Receive Date: 20100303
  Receipt Date: 20090520
  Transmission Date: 20100710
  Serious: Yes (Other)
  Sender: FDA-Public Use
  Company Number: 634083

PATIENT
  Age: 51 Year
  Sex: Female

DRUGS (6)
  1. BONIVA [Suspect]
     Indication: OSTEOPOROSIS
     Dosage: 3 MG 1 PER 3 MONTH INTRAVENOUS
     Route: 042
     Dates: start: 20090519, end: 20090519
  2. FLEXERIL [Concomitant]
  3. PERCOCET (OXYCODONE/PARACETAMOL) [Concomitant]
  4. OXYCONTIN [Concomitant]
  5. AMITRIPTYLINE HYDROCHLORIDE [Concomitant]
  6. FIORINAL (AUSTRALIA) (CODEINE PHOSPHATE/DOXYLAMINE SUCCINATE/PARACETAM [Concomitant]

REACTIONS (3)
  - BURNING SENSATION [None]
  - THERMAL BURN [None]
  - VEIN DISORDER [None]
